FAERS Safety Report 4294815-0 (Version None)
Quarter: 2004Q1

REPORT INFORMATION
  Report Type: 
  Country: None (occurrence: None)
  Receive Date: 20040216
  Receipt Date: 20030108
  Transmission Date: 20041129
  Serious: No
  Sender: FDA-Public Use
  Company Number: US-GLAXOSMITHKLINE-A0391516A

PATIENT
  Age: 59 Year
  Sex: Male

DRUGS (3)
  1. LAMICTAL [Suspect]
     Indication: POST-TRAUMATIC STRESS DISORDER
     Dosage: 75MG PER DAY
     Route: 048
     Dates: start: 20020901
  2. NARDIL [Concomitant]
  3. ATACAND [Concomitant]

REACTIONS (3)
  - OCULAR ICTERUS [None]
  - PRURITUS [None]
  - RENAL PAIN [None]
